FAERS Safety Report 9963263 (Version 1)
Quarter: 2014Q1

REPORT INFORMATION
  Report Type: Report from Study
  Country: US (occurrence: US)
  Receive Date: 20140305
  Receipt Date: 20140305
  Transmission Date: 20141002
  Serious: No
  Sender: FDA-Public Use
  Company Number: US-ABBVIE-13P-163-1112723-00

PATIENT
  Age: 21 Year
  Sex: Female

DRUGS (10)
  1. HUMIRA [Suspect]
     Indication: CROHN^S DISEASE
     Dosage: LOADING DOSE
     Dates: start: 20130622, end: 20130622
  2. ALLEGRA [Concomitant]
     Indication: HYPERSENSITIVITY
     Dosage: AT NIGHT
  3. ZYRTEC [Concomitant]
     Indication: HYPERSENSITIVITY
     Dosage: AT NIGHT
  4. LAMICTAL [Concomitant]
     Indication: AFFECTIVE DISORDER
  5. FLUOXETINE [Concomitant]
     Indication: DEPRESSION
  6. ALESSE [Concomitant]
     Indication: PROPHYLAXIS
  7. ALESSE [Concomitant]
     Indication: OVARIAN CYST
  8. POTASSIUM CITRATE [Concomitant]
     Indication: NEPHROLITHIASIS
  9. KLONOPIN [Concomitant]
     Indication: ANXIETY
  10. PRENATAL [Concomitant]
     Indication: VITAMIN SUPPLEMENTATION

REACTIONS (1)
  - Injection site pain [Recovered/Resolved]
